FAERS Safety Report 8848376 (Version 1)
Quarter: 2012Q4

REPORT INFORMATION
  Report Type: Report from Study
  Country: JP (occurrence: JP)
  Receive Date: 20121018
  Receipt Date: 20121018
  Transmission Date: 20130627
  Serious: Yes (Hospitalization, Other)
  Sender: FDA-Public Use
  Company Number: PHHY2009JP09658

PATIENT
  Age: 48 Year
  Sex: Male
  Weight: 63 kg

DRUGS (13)
  1. ICL670A [Suspect]
     Indication: IRON OVERLOAD
     Dosage: 1250 mg, QD
     Route: 048
     Dates: start: 20080830, end: 20080901
  2. ICL670A [Suspect]
     Dosage: 625 mg/day
     Route: 048
     Dates: start: 20080902, end: 20081010
  3. DESFERAL [Suspect]
     Dosage: 500 mg, QD
     Dates: start: 20081010, end: 20081022
  4. VANCOMYCIN [Suspect]
     Dosage: 1 g/day
     Route: 042
     Dates: start: 20081219, end: 20081227
  5. VANCOMYCIN [Suspect]
     Dosage: 0.75 g/day
     Route: 042
     Dates: start: 20081228, end: 200901
  6. TAMIFLU (OSELTAMIVIR PHOSPHATE) [Suspect]
     Dosage: 150 mg/day
     Route: 048
     Dates: start: 20090108, end: 20090112
  7. DIFLUCAN [Concomitant]
     Dosage: 100 mg
     Route: 048
     Dates: start: 20080830, end: 20090228
  8. TETRAMIDE [Concomitant]
     Dosage: 30 mg
     Route: 048
     Dates: start: 20080830, end: 20090228
  9. ROHYPNOL [Concomitant]
     Dosage: 0.5 mg
     Route: 048
     Dates: start: 20080830, end: 20090228
  10. FUROSEMIDE [Concomitant]
     Dosage: 40 mg
     Route: 048
     Dates: start: 20080830, end: 20090228
  11. ALDACTONE-A [Concomitant]
     Dosage: 25 mg
     Route: 048
     Dates: start: 20080830, end: 20090228
  12. URSO [Concomitant]
     Dosage: 300 mg
     Route: 048
     Dates: start: 20080830, end: 20090228
  13. PARIET [Concomitant]
     Dosage: 10 mg
     Route: 048
     Dates: start: 20080830, end: 20090228

REACTIONS (4)
  - Renal impairment [Not Recovered/Not Resolved]
  - Blood creatinine increased [Unknown]
  - Blood urea increased [Unknown]
  - Vomiting [Not Recovered/Not Resolved]
